FAERS Safety Report 7709233 (Version 3)
Quarter: 2015Q4

REPORT INFORMATION
  Report Type: Spontaneous
  Country: US (occurrence: US)
  Receive Date: 20101214
  Receipt Date: 20151008
  Transmission Date: 20160305
  Serious: Yes (Other)
  Sender: FDA-Public Use
  Company Number: US-ASTRAZENECA-2010SE32761

PATIENT
  Age: 69 Year
  Sex: Female

DRUGS (22)
  1. TRICOR [Concomitant]
     Active Substance: FENOFIBRATE
     Indication: BLOOD TRIGLYCERIDES INCREASED
  2. NIASPAN [Concomitant]
     Active Substance: NIACIN
  3. APIDRA (INSULIN) [Concomitant]
     Indication: DIABETES MELLITUS
     Dosage: VARIES 3 TIMES
  4. LANTUS (INSULIN) [Concomitant]
     Indication: DIABETES MELLITUS
     Dosage: VARIES ONCE
  5. CHONDROITIN [Concomitant]
     Active Substance: CHONDROITIN
  6. NEXIUM [Suspect]
     Active Substance: ESOMEPRAZOLE MAGNESIUM
     Indication: DYSPEPSIA
     Route: 048
  7. FUROSEMIDE. [Concomitant]
     Active Substance: FUROSEMIDE
     Indication: OLIGURIA
  8. CALCIUM + D [Concomitant]
     Active Substance: CALCIUM\VITAMIN D
     Dosage: 600 MG/125 IU, YWO TIMES A DAY
  9. MULTIVITAMIN FOR SENIORS [Concomitant]
     Dosage: TWO TIMES
  10. CINNAMON. [Concomitant]
     Active Substance: CINNAMON
  11. LOVAZA [Concomitant]
     Active Substance: OMEGA-3-ACID ETHYL ESTERS
     Indication: BLOOD TRIGLYCERIDES INCREASED
  12. ASPIRIN (COATED) [Concomitant]
     Indication: ANTICOAGULANT THERAPY
  13. LISINOPRIL. [Concomitant]
     Active Substance: LISINOPRIL
     Indication: HYPERTENSION
  14. GLUCOSAMINE [Concomitant]
     Active Substance: GLUCOSAMINE
  15. VITAMIN D [Concomitant]
     Active Substance: CHOLECALCIFEROL
  16. CRESTOR [Suspect]
     Active Substance: ROSUVASTATIN CALCIUM
     Indication: BLOOD CHOLESTEROL INCREASED
     Route: 048
  17. NAPROXEN SODIUM. [Suspect]
     Active Substance: NAPROXEN SODIUM
     Route: 065
  18. ALLOPURINOL. [Concomitant]
     Active Substance: ALLOPURINOL
     Indication: RENAL LITHIASIS PROPHYLAXIS
  19. COENZYME Q10 [Concomitant]
     Active Substance: UBIDECARENONE
  20. METOPROLOL [Concomitant]
     Active Substance: METOPROLOL
     Indication: HYPERTENSION
  21. AMITRIPTYLINE [Concomitant]
     Active Substance: AMITRIPTYLINE
     Indication: SLEEP DISORDER
  22. GARLIC. [Concomitant]
     Active Substance: GARLIC

REACTIONS (10)
  - Sleep disorder [Unknown]
  - Abdominal discomfort [Unknown]
  - Hypertension [Unknown]
  - Intentional product misuse [Unknown]
  - Blood triglycerides increased [Unknown]
  - Macular degeneration [Unknown]
  - Nephrolithiasis [Unknown]
  - Type 2 diabetes mellitus [Unknown]
  - Ulcer [Unknown]
  - Blood cholesterol increased [Unknown]
